FAERS Safety Report 19265379 (Version 2)
Quarter: 2022Q3

REPORT INFORMATION
  Report Type: Spontaneous
  Country: US (occurrence: US)
  Receive Date: 20210517
  Receipt Date: 20220919
  Transmission Date: 20221026
  Serious: No
  Sender: FDA-Public Use
  Company Number: US-PFIZER INC-2021539421

PATIENT
  Sex: Female

DRUGS (55)
  1. DOCETAXEL [Suspect]
     Active Substance: DOCETAXEL
     Indication: Chemotherapy
     Dosage: 160 MG
  2. DOCETAXEL [Suspect]
     Active Substance: DOCETAXEL
     Dosage: UNK
     Dates: start: 20180925, end: 20190108
  3. TAXOTERE [Concomitant]
     Active Substance: DOCETAXEL
     Indication: Chemotherapy
     Dosage: 174 MG, 1X/DAY
     Route: 042
     Dates: start: 20180925, end: 20180925
  4. TAXOTERE [Concomitant]
     Active Substance: DOCETAXEL
     Dosage: 169 MG, 1X/DAY
     Route: 042
     Dates: start: 20181016, end: 20181016
  5. TAXOTERE [Concomitant]
     Active Substance: DOCETAXEL
     Dosage: 169 MG, 1X/DAY
     Route: 042
     Dates: start: 20181106, end: 20181106
  6. TAXOTERE [Concomitant]
     Active Substance: DOCETAXEL
     Dosage: 165 MG, 1X/DAY
     Route: 042
     Dates: start: 20181127, end: 20181127
  7. TAXOTERE [Concomitant]
     Active Substance: DOCETAXEL
     Dosage: 165 MG, 1X/DAY
     Route: 042
     Dates: start: 20181218, end: 20181218
  8. TAXOTERE [Concomitant]
     Active Substance: DOCETAXEL
     Dosage: 165 MG, 1X/DAY
     Route: 042
     Dates: start: 20190108, end: 20190108
  9. PARAPLATIN [Concomitant]
     Active Substance: CARBOPLATIN
     Indication: Chemotherapy
     Dosage: 540 MG, 1X/DAY
     Route: 042
     Dates: start: 20180925, end: 20180925
  10. PARAPLATIN [Concomitant]
     Active Substance: CARBOPLATIN
     Dosage: 510 MG, 1X/DAY
     Route: 042
     Dates: start: 20181016, end: 20181016
  11. PARAPLATIN [Concomitant]
     Active Substance: CARBOPLATIN
     Dosage: 520 MG, 1X/DAY
     Route: 042
     Dates: start: 20181106, end: 20181106
  12. PARAPLATIN [Concomitant]
     Active Substance: CARBOPLATIN
     Dosage: 520 MG, 1X/DAY
     Route: 042
     Dates: start: 20181127, end: 20181127
  13. PARAPLATIN [Concomitant]
     Active Substance: CARBOPLATIN
     Dosage: 620 MG, 1X/DAY
     Route: 042
     Dates: start: 20181218, end: 20181218
  14. PARAPLATIN [Concomitant]
     Active Substance: CARBOPLATIN
     Dosage: 510 MG, 1X/DAY
     Route: 042
     Dates: start: 20190108, end: 20190108
  15. HERCEPTIN [Concomitant]
     Active Substance: TRASTUZUMAB
     Indication: Chemotherapy
     Dosage: 900 MG, 1X/DAY
     Route: 042
     Dates: start: 20180925, end: 20180925
  16. HERCEPTIN [Concomitant]
     Active Substance: TRASTUZUMAB
     Dosage: 954 MG, 1X/DAY
     Route: 042
     Dates: start: 20180925, end: 20180925
  17. HERCEPTIN [Concomitant]
     Active Substance: TRASTUZUMAB
     Dosage: 750 MG, 1X/DAY
     Route: 042
     Dates: start: 20181016, end: 20181016
  18. HERCEPTIN [Concomitant]
     Active Substance: TRASTUZUMAB
     Dosage: 750 MG, 1X/DAY
     Route: 042
     Dates: start: 20181106, end: 20181106
  19. HERCEPTIN [Concomitant]
     Active Substance: TRASTUZUMAB
     Dosage: 750 MG, 1X/DAY
     Route: 042
     Dates: start: 20181127, end: 20181127
  20. HERCEPTIN [Concomitant]
     Active Substance: TRASTUZUMAB
     Dosage: 750 MG, 1X/DAY
     Route: 042
     Dates: start: 20181218, end: 20181218
  21. HERCEPTIN [Concomitant]
     Active Substance: TRASTUZUMAB
     Dosage: 750 MG, 1X/DAY
     Route: 042
     Dates: start: 20190108, end: 20190108
  22. HERCEPTIN [Concomitant]
     Active Substance: TRASTUZUMAB
     Dosage: 750 MG, 1X/DAY
     Route: 042
     Dates: start: 20190129, end: 20190129
  23. HERCEPTIN [Concomitant]
     Active Substance: TRASTUZUMAB
     Dosage: 600 MG, 1X/DAY
     Route: 042
     Dates: start: 20190219, end: 20190219
  24. HERCEPTIN [Concomitant]
     Active Substance: TRASTUZUMAB
     Dosage: 600 MG, 1X/DAY
     Route: 042
     Dates: start: 20190312, end: 20190312
  25. HEPARIN [Concomitant]
     Active Substance: HEPARIN SODIUM
     Dosage: 500 IU, 1X/DAY
     Route: 042
     Dates: start: 20180925, end: 20180925
  26. HEPARIN [Concomitant]
     Active Substance: HEPARIN SODIUM
     Dosage: 500 IU, 1X/DAY
     Route: 042
     Dates: start: 20181016, end: 20181016
  27. HEPARIN [Concomitant]
     Active Substance: HEPARIN SODIUM
     Dosage: 500 IU, 1X/DAY
     Route: 042
     Dates: start: 20181024, end: 20181024
  28. HEPARIN [Concomitant]
     Active Substance: HEPARIN SODIUM
     Dosage: 500 IU, 1X/DAY
     Route: 042
     Dates: start: 20181106, end: 20181106
  29. HEPARIN [Concomitant]
     Active Substance: HEPARIN SODIUM
     Dosage: 500 IU, 1X/DAY
     Route: 042
     Dates: start: 20181127, end: 20181127
  30. HEPARIN [Concomitant]
     Active Substance: HEPARIN SODIUM
     Dosage: 500 IU, 1X/DAY
     Route: 042
     Dates: start: 20181218, end: 20181218
  31. HEPARIN [Concomitant]
     Active Substance: HEPARIN SODIUM
     Dosage: 500 IU, 1X/DAY
     Route: 042
     Dates: start: 20190108, end: 20190108
  32. HEPARIN [Concomitant]
     Active Substance: HEPARIN SODIUM
     Dosage: 500 IU, 1X/DAY
     Route: 042
     Dates: start: 20190129, end: 20190129
  33. HEPARIN [Concomitant]
     Active Substance: HEPARIN SODIUM
     Dosage: 500 IU, 1X/DAY
     Route: 042
     Dates: start: 20190219, end: 20190219
  34. HEPARIN [Concomitant]
     Active Substance: HEPARIN SODIUM
     Dosage: 500 IU, 1X/DAY
     Route: 042
     Dates: start: 20190312, end: 20190312
  35. SODIUM CHLORIDE [Concomitant]
     Active Substance: SODIUM CHLORIDE
     Dosage: 1000 ML, 1X/DAY
     Route: 042
     Dates: start: 20181024, end: 20181024
  36. SODIUM CHLORIDE [Concomitant]
     Active Substance: SODIUM CHLORIDE
     Dosage: 1000 ML, 1X/DAY
     Route: 042
     Dates: start: 20190108, end: 20190108
  37. SODIUM CHLORIDE [Concomitant]
     Active Substance: SODIUM CHLORIDE
     Dosage: 1000 ML, 1X/DAY
     Route: 042
     Dates: start: 20190129, end: 20190129
  38. DECADRON [Concomitant]
     Active Substance: DEXAMETHASONE
     Dosage: 20 MG, 1X/DAY
     Route: 042
     Dates: start: 20180925, end: 20180925
  39. DECADRON [Concomitant]
     Active Substance: DEXAMETHASONE
     Dosage: 20 MG, 1X/DAY
     Route: 042
     Dates: start: 20181016, end: 20181016
  40. DECADRON [Concomitant]
     Active Substance: DEXAMETHASONE
     Dosage: 20 MG, 1X/DAY
     Route: 042
     Dates: start: 20181106, end: 20181106
  41. DECADRON [Concomitant]
     Active Substance: DEXAMETHASONE
     Dosage: 20 MG, 1X/DAY
     Route: 042
     Dates: start: 20181127, end: 20181127
  42. DECADRON [Concomitant]
     Active Substance: DEXAMETHASONE
     Dosage: 20 MG, 1X/DAY
     Route: 042
     Dates: start: 20181218, end: 20181218
  43. DECADRON [Concomitant]
     Active Substance: DEXAMETHASONE
     Dosage: 20 MG, 1X/DAY
     Route: 042
     Dates: start: 20190108, end: 20190108
  44. ALOXI [Concomitant]
     Active Substance: PALONOSETRON HYDROCHLORIDE
     Dosage: 250 UG, 1X/DAY
     Route: 042
     Dates: start: 20180925, end: 20180925
  45. ALOXI [Concomitant]
     Active Substance: PALONOSETRON HYDROCHLORIDE
     Dosage: 250 UG, 1X/DAY
     Route: 042
     Dates: start: 20181016, end: 20181016
  46. ALOXI [Concomitant]
     Active Substance: PALONOSETRON HYDROCHLORIDE
     Dosage: 250 UG, 1X/DAY
     Route: 042
     Dates: start: 20181106, end: 20181106
  47. ALOXI [Concomitant]
     Active Substance: PALONOSETRON HYDROCHLORIDE
     Dosage: 250 UG, 1X/DAY
     Route: 042
     Dates: start: 20181127, end: 20181127
  48. ALOXI [Concomitant]
     Active Substance: PALONOSETRON HYDROCHLORIDE
     Dosage: 250 UG, 1X/DAY
     Route: 042
     Dates: start: 20181218, end: 20181218
  49. ALOXI [Concomitant]
     Active Substance: PALONOSETRON HYDROCHLORIDE
     Dosage: 250 UG, 1X/DAY
     Route: 042
     Dates: start: 20190108, end: 20190108
  50. NEULASTA [Concomitant]
     Active Substance: PEGFILGRASTIM
     Dosage: 6 MG, 1X/DAY
     Route: 058
     Dates: start: 20180925, end: 20180925
  51. NEULASTA [Concomitant]
     Active Substance: PEGFILGRASTIM
     Dosage: 6 MG, 1X/DAY
     Route: 058
     Dates: start: 20181016, end: 20181016
  52. NEULASTA [Concomitant]
     Active Substance: PEGFILGRASTIM
     Dosage: 6 MG, 1X/DAY
     Route: 058
     Dates: start: 20181106, end: 20181106
  53. NEULASTA [Concomitant]
     Active Substance: PEGFILGRASTIM
     Dosage: 6 MG, 1X/DAY
     Route: 058
     Dates: start: 20181127, end: 20181127
  54. NEULASTA [Concomitant]
     Active Substance: PEGFILGRASTIM
     Dosage: 6 MG, 1X/DAY
     Route: 058
     Dates: start: 20181218, end: 20181218
  55. NEULASTA [Concomitant]
     Active Substance: PEGFILGRASTIM
     Dosage: 6 MG, 1X/DAY
     Route: 058
     Dates: start: 20190108, end: 20190108

REACTIONS (3)
  - Eye injury [Unknown]
  - Lacrimation increased [Unknown]
  - Lacrimal structure injury [Not Recovered/Not Resolved]
